FAERS Safety Report 9232322 (Version 2)
Quarter: 2013Q3

REPORT INFORMATION
  Report Type: Spontaneous
  Country: US (occurrence: US)
  Receive Date: 20130416
  Receipt Date: 20130807
  Transmission Date: 20140515
  Serious: Yes (Other)
  Sender: FDA-Public Use
  Company Number: US-AMGEN-USASP2013024995

PATIENT
  Age: 67 Year
  Sex: Female
  Weight: 46.71 kg

DRUGS (5)
  1. PROLIA [Suspect]
     Indication: OSTEOPOROSIS
     Dosage: 60 MG, Q6MO
     Route: 058
     Dates: start: 20120309
  2. PROLIA [Suspect]
     Route: 058
  3. CALCIUM [Concomitant]
     Indication: OSTEOPOROSIS
     Route: 048
  4. FLORASTOR [Concomitant]
  5. IBUPROFEN [Concomitant]
     Indication: ARTHRALGIA
     Dosage: 200 MG, UNK

REACTIONS (2)
  - Osteonecrosis of jaw [Unknown]
  - Tooth abscess [Recovered/Resolved]
